FAERS Safety Report 8390242-5 (Version None)
Quarter: 2012Q2

REPORT INFORMATION
  Report Type: 
  Country: None (occurrence: None)
  Receive Date: 20120529
  Receipt Date: 20120523
  Transmission Date: 20120825
  Serious: Yes (Other)
  Sender: FDA-Public Use
  Company Number: US-PFIZER INC-2012125522

PATIENT
  Sex: Male
  Weight: 86.168 kg

DRUGS (7)
  1. LYRICA [Suspect]
     Indication: PAIN IN EXTREMITY
  2. OXYCONTIN [Concomitant]
     Dosage: 40 MG, 3X/DAY
  3. LYRICA [Suspect]
     Indication: PAIN
  4. ANDROGEL [Concomitant]
     Dosage: UNK
  5. LYRICA [Suspect]
     Indication: BURNING SENSATION
  6. LYRICA [Suspect]
     Indication: LIMB DISCOMFORT
  7. LYRICA [Suspect]
     Indication: COMPLEX REGIONAL PAIN SYNDROME
     Dosage: 200 MG, 2X/DAY
     Route: 048

REACTIONS (4)
  - FOREIGN BODY [None]
  - NERVE COMPRESSION [None]
  - DYSPHAGIA [None]
  - ARTHROPATHY [None]
